FAERS Safety Report 9844278 (Version 1)
Quarter: 2014Q1

REPORT INFORMATION
  Report Type: Spontaneous
  Country: US (occurrence: US)
  Receive Date: 20140127
  Receipt Date: 20140127
  Transmission Date: 20141002
  Serious: Yes (Hospitalization, Disabling, Other)
  Sender: FDA-Public Use
  Company Number: US-009507513-1401USA009742

PATIENT
  Sex: Male

DRUGS (7)
  1. ASMANEX TWISTHALER [Suspect]
     Indication: ASTHMA
     Dosage: 220 MICROGRAM, TWO PUFFS, BID
     Route: 055
     Dates: start: 1994
  2. ASMANEX TWISTHALER [Suspect]
     Indication: CHRONIC OBSTRUCTIVE PULMONARY DISEASE
  3. COMBIVENT [Concomitant]
  4. PLAVIX [Concomitant]
  5. PRAVASTATIN SODIUM [Concomitant]
  6. ASPIRIN [Concomitant]
     Dosage: LOW DOSE
     Route: 048
  7. OXYGEN [Concomitant]

REACTIONS (9)
  - Mesothelioma [Recovering/Resolving]
  - Pneumothorax [Recovering/Resolving]
  - Lung operation [Recovering/Resolving]
  - Cerebrovascular accident [Recovering/Resolving]
  - Stent placement [Recovering/Resolving]
  - Dyspnoea [Recovering/Resolving]
  - Sinus disorder [Recovering/Resolving]
  - Increased viscosity of bronchial secretion [Recovering/Resolving]
  - Nervousness [Recovering/Resolving]
